FAERS Safety Report 6806758-6 (Version None)
Quarter: 2010Q2

REPORT INFORMATION
  Report Type: 
  Country: None (occurrence: None)
  Receive Date: 20100629
  Receipt Date: 20080424
  Transmission Date: 20101027
  Serious: No
  Sender: FDA-Public Use
  Company Number: US-PFIZER INC-2008036950

PATIENT
  Sex: Male
  Weight: 88.6 kg

DRUGS (1)
  1. VIAGRA [Suspect]
     Dates: start: 20080424

REACTIONS (3)
  - ERECTION INCREASED [None]
  - PAIN [None]
  - SWELLING [None]
